FAERS Safety Report 8984355 (Version 1)
Quarter: 2012Q4

REPORT INFORMATION
  Report Type: Spontaneous
  Country: IT (occurrence: None)
  Receive Date: 20121217
  Receipt Date: 20121217
  Transmission Date: 20130627
  Serious: Yes (Other)
  Sender: FDA-Public Use
  Company Number: IT-2012-4028

PATIENT
  Age: 66 Year
  Sex: Female
  Weight: 74.03 kg

DRUGS (2)
  1. NAVELBINE [Suspect]
     Indication: BREAST CANCER
     Route: 042
     Dates: start: 20120421, end: 20120713
  2. XELODA [Suspect]
     Dosage: 1000 mg/m2, Cyclical (1/28), Oral
     Route: 048
     Dates: start: 20120427, end: 20120706

REACTIONS (1)
  - Embolism [None]
